FAERS Safety Report 9802986 (Version 1)
Quarter: 2014Q1

REPORT INFORMATION
  Report Type: Spontaneous
  Country: US (occurrence: None)
  Receive Date: 20140106
  Receipt Date: 20140106
  Transmission Date: 20141002
  Serious: No
  Sender: FDA-Public Use
  Company Number: None

PATIENT
  Age: 72 Year
  Sex: Female

DRUGS (1)
  1. TECFIDERA 240MG BIOGEN [Suspect]
     Route: 048
     Dates: start: 20131230, end: 20140104

REACTIONS (2)
  - Dyspnoea [None]
  - Chest discomfort [None]
